FAERS Safety Report 4783371-6 (Version None)
Quarter: 2005Q3

REPORT INFORMATION
  Report Type: 
  Country: None (occurrence: None)
  Receive Date: 20050928
  Receipt Date: 20050913
  Transmission Date: 20060218
  Serious: Yes (Death, Hospitalization)
  Sender: FDA-Public Use
  Company Number: P200500021

PATIENT
  Age: 78 Year
  Sex: Male

DRUGS (18)
  1. PLENAXIS [Suspect]
     Indication: PROSTATE CANCER
     Dosage: 100 MG, SINGLE, INTRAMUSCULAR
     Route: 030
     Dates: start: 20040609, end: 20040609
  2. PLENAXIS [Suspect]
     Indication: PROSTATE CANCER
     Dosage: 100 MG, SINGLE, INTRAMUSCULAR
     Route: 030
     Dates: start: 20040623, end: 20040623
  3. PLENAXIS [Suspect]
     Indication: PROSTATE CANCER
     Dosage: 100 MG, SINGLE, INTRAMUSCULAR
     Route: 030
     Dates: start: 20040709, end: 20040709
  4. PLENAXIS [Suspect]
     Indication: PROSTATE CANCER
     Dosage: 100 MG, SINGLE, INTRAMUSCULAR
     Route: 030
     Dates: start: 20040806, end: 20040806
  5. PLENAXIS [Suspect]
     Indication: PROSTATE CANCER
     Dosage: 100 MG, SINGLE, INTRAMUSCULAR
     Route: 030
     Dates: start: 20041027, end: 20041027
  6. PLENAXIS [Suspect]
     Indication: PROSTATE CANCER
     Dosage: 100 MG, SINGLE, INTRAMUSCULAR
     Route: 030
     Dates: start: 20041201, end: 20041201
  7. PLENAXIS [Suspect]
     Indication: PROSTATE CANCER
     Dosage: 100 MG, SINGLE, INTRAMUSCULAR
     Route: 030
     Dates: start: 20040114, end: 20050114
  8. PLENAXIS [Suspect]
     Indication: PROSTATE CANCER
     Dosage: 100 MG, SINGLE, INTRAMUSCULAR
     Route: 030
     Dates: start: 20050607, end: 20050607
  9. PLENAXIS [Suspect]
     Indication: PROSTATE CANCER
     Dosage: 100 MG, SINGLE, INTRAMUSCULAR
     Route: 030
     Dates: start: 20050718, end: 20050718
  10. ATIVAN [Concomitant]
  11. ASPIRIN [Concomitant]
  12. COMPAZINE [Concomitant]
  13. SCOPOLAMINE (HYOSCINE ) [Concomitant]
  14. MORPHINE SULFATE [Concomitant]
  15. DULCOLAX [Concomitant]
  16. PABA (AMINOBENZOIC ACID) [Concomitant]
  17. TEMAZEPAM [Concomitant]
  18. PERCOCET [Concomitant]

REACTIONS (4)
  - DISEASE PROGRESSION [None]
  - MALIGNANT NEOPLASM PROGRESSION [None]
  - PROSTATE CANCER [None]
  - PROSTATIC SPECIFIC ANTIGEN INCREASED [None]
